FAERS Safety Report 4417005-7 (Version None)
Quarter: 2004Q3

REPORT INFORMATION
  Report Type: 
  Country: None (occurrence: None)
  Receive Date: 20040802
  Receipt Date: 20040721
  Transmission Date: 20050211
  Serious: Yes (Life-Threatening, Disabling)
  Sender: FDA-Public Use
  Company Number: HQWYE822730JUN04

PATIENT
  Age: 55 Year
  Sex: Male
  Weight: 90.8 kg

DRUGS (10)
  1. EFFEXOR XR [Suspect]
     Indication: ANXIETY
     Dosage: 225 + 300 + 375 MG 1X PER 1 DAY, ORAL
     Route: 048
     Dates: start: 20040101, end: 20040101
  2. EFFEXOR XR [Suspect]
     Indication: DEPRESSION
     Dosage: 225 + 300 + 375 MG 1X PER 1 DAY, ORAL
     Route: 048
     Dates: start: 20040101, end: 20040101
  3. EFFEXOR XR [Suspect]
     Indication: ANXIETY
     Dosage: 225 + 300 + 375 MG 1X PER 1 DAY, ORAL
     Route: 048
     Dates: start: 20040101, end: 20040101
  4. EFFEXOR XR [Suspect]
     Indication: DEPRESSION
     Dosage: 225 + 300 + 375 MG 1X PER 1 DAY, ORAL
     Route: 048
     Dates: start: 20040101, end: 20040101
  5. EFFEXOR XR [Suspect]
     Indication: ANXIETY
     Dosage: 225 + 300 + 375 MG 1X PER 1 DAY, ORAL
     Route: 048
     Dates: start: 20040201, end: 20040101
  6. EFFEXOR XR [Suspect]
     Indication: DEPRESSION
     Dosage: 225 + 300 + 375 MG 1X PER 1 DAY, ORAL
     Route: 048
     Dates: start: 20040201, end: 20040101
  7. EFFEXOR XR [Suspect]
     Indication: ANXIETY
     Dosage: 225 + 300 + 375 MG 1X PER 1 DAY, ORAL
     Route: 048
     Dates: start: 20030601, end: 20040201
  8. EFFEXOR XR [Suspect]
     Indication: DEPRESSION
     Dosage: 225 + 300 + 375 MG 1X PER 1 DAY, ORAL
     Route: 048
     Dates: start: 20030601, end: 20040201
  9. LIPITOR (ATRVASTATIN) [Concomitant]
  10. ACETYLSALICYLIC ACID SRT [Concomitant]

REACTIONS (6)
  - ABNORMAL DREAMS [None]
  - AGGRESSION [None]
  - IMPAIRED DRIVING ABILITY [None]
  - MYOCLONUS [None]
  - RAPID EYE MOVEMENTS SLEEP ABNORMAL [None]
  - SOMNOLENCE [None]
